FAERS Safety Report 7381663-8 (Version None)
Quarter: 2011Q1

REPORT INFORMATION
  Report Type: 
  Country: None (occurrence: None)
  Receive Date: 20110329
  Receipt Date: 20101001
  Transmission Date: 20110831
  Serious: Yes (Other)
  Sender: FDA-Public Use
  Company Number: US-BAYER-201033336NA

PATIENT
  Sex: Female
  Weight: 74.83 kg

DRUGS (3)
  1. LAMICTAL [Concomitant]
     Dosage: 100 MG, UNK
     Route: 048
  2. YAZ [Suspect]
     Dosage: UNK
     Route: 048
     Dates: start: 20040101, end: 20070101
  3. FLUOXETINE HCL [Concomitant]
     Dosage: 20 MG, UNK

REACTIONS (5)
  - CHOLECYSTECTOMY [None]
  - CHOLELITHIASIS [None]
  - PAIN [None]
  - GALLBLADDER CHOLESTEROLOSIS [None]
  - CHOLECYSTITIS [None]
